FAERS Safety Report 7501649-X (Version None)
Quarter: 2011Q2

REPORT INFORMATION
  Report Type: 
  Country: None (occurrence: None)
  Receive Date: 20110524
  Receipt Date: 20110513
  Transmission Date: 20111010
  Serious: No
  Sender: FDA-Public Use
  Company Number: CA-ELI_LILLY_AND_COMPANY-CA201105003793

PATIENT
  Sex: Female

DRUGS (6)
  1. AMITRIPTYLINE HCL [Concomitant]
  2. INDAPAMIDE [Concomitant]
  3. SERTRALINE HYDROCHLORIDE [Concomitant]
  4. EFFEXOR [Concomitant]
  5. ZYPREXA [Suspect]
     Dosage: 5 MG, QD
  6. FENOFIBRATE [Concomitant]

REACTIONS (6)
  - URINARY TRACT INFECTION [None]
  - FUNGAL SKIN INFECTION [None]
  - WEIGHT INCREASED [None]
  - NEUROPATHY PERIPHERAL [None]
  - EYE HAEMORRHAGE [None]
  - DIABETES MELLITUS [None]
